FAERS Safety Report 5511194-9 (Version None)
Quarter: 2007Q4

REPORT INFORMATION
  Report Type: 
  Country: None (occurrence: None)
  Receive Date: 20071109
  Receipt Date: 20071030
  Transmission Date: 20080405
  Serious: Yes (Life-Threatening)
  Sender: FDA-Public Use
  Company Number: IE-ELI_LILLY_AND_COMPANY-IE200705005984

PATIENT
  Age: 50 Year
  Sex: Female

DRUGS (6)
  1. GEMZAR [Suspect]
     Indication: NON-SMALL CELL LUNG CANCER METASTATIC
     Dosage: 1250 MG/M2, ON DAYS 1 AND 8
     Route: 042
     Dates: start: 20060328
  2. GEMZAR [Suspect]
     Dates: start: 20060419
  3. CISPLATIN [Concomitant]
     Indication: NON-SMALL CELL LUNG CANCER METASTATIC
     Dosage: 80 MG/M2 ON DAY 1
     Route: 042
     Dates: start: 20060328
  4. CISPLATIN [Concomitant]
     Dates: start: 20060419
  5. ATORVASTATIN CALCIUM [Concomitant]
     Indication: CAROTID ARTERY STENOSIS
     Dosage: 10 MG, EACH EVENING
     Route: 048
  6. TINZAPARIN [Concomitant]
     Indication: CAROTID ARTERY STENOSIS
     Dosage: 175 U/KG
     Route: 058

REACTIONS (1)
  - REVERSIBLE POSTERIOR LEUKOENCEPHALOPATHY SYNDROME [None]
